FAERS Safety Report 9021748 (Version 1)
Quarter: 2013Q1

REPORT INFORMATION
  Report Type: Spontaneous
  Country: US (occurrence: US)
  Receive Date: 20130119
  Receipt Date: 20130119
  Transmission Date: 20140127
  Serious: No
  Sender: FDA-Public Use
  Company Number: US-ALLERGAN-1206357US

PATIENT
  Age: 68 Year
  Sex: Female

DRUGS (1)
  1. BOTOX? [Suspect]
     Indication: MUSCLE ATROPHY
     Dosage: UNK
     Route: 030
     Dates: start: 20120427, end: 20120427

REACTIONS (13)
  - Neck pain [Recovering/Resolving]
  - Fatigue [Unknown]
  - Fibromyalgia [Unknown]
  - Fatigue [Unknown]
  - Sleep apnoea syndrome [Unknown]
  - Dry eye [Unknown]
  - Neuralgia [Unknown]
  - Muscular weakness [Unknown]
  - Vision blurred [Unknown]
  - Diplopia [Unknown]
  - Dyspnoea [Unknown]
  - Chest discomfort [Unknown]
  - Dry mouth [Unknown]
